FAERS Safety Report 8012047-7 (Version None)
Quarter: 2011Q4

REPORT INFORMATION
  Report Type: 
  Country: None (occurrence: None)
  Receive Date: 20111228
  Receipt Date: 20111214
  Transmission Date: 20120403
  Serious: Yes (Hospitalization)
  Sender: FDA-Public Use
  Company Number: FR-GLAXOSMITHKLINE-B0771343A

PATIENT
  Sex: Female
  Weight: 49 kg

DRUGS (6)
  1. PAZOPANIB [Suspect]
     Indication: LEIOMYOSARCOMA
     Dosage: 1600MG CUMULATIVE DOSE
     Route: 048
     Dates: start: 20111208
  2. GEMCITABINE [Suspect]
     Indication: LEIOMYOSARCOMA
     Dosage: 1550MG CUMULATIVE DOSE
     Route: 042
     Dates: start: 20111208
  3. FLECAINIDE ACETATE [Concomitant]
     Indication: ARRHYTHMIA
     Route: 048
     Dates: start: 20111126
  4. ASPIRIN [Concomitant]
     Indication: ARRHYTHMIA
     Route: 048
     Dates: start: 20111126
  5. MOTILIUM [Concomitant]
     Indication: NAUSEA
     Route: 048
     Dates: start: 20090101
  6. NEXIUM [Concomitant]
     Indication: ABDOMINAL PAIN UPPER
     Route: 048
     Dates: start: 20110717

REACTIONS (1)
  - GASTROINTESTINAL DISORDER [None]
